FAERS Safety Report 21002934 (Version 1)
Quarter: 2022Q2

REPORT INFORMATION
  Report Type: Report from Study
  Country: US (occurrence: US)
  Receive Date: 20220624
  Receipt Date: 20220624
  Transmission Date: 20220721
  Serious: Yes (Hospitalization, Other)
  Sender: FDA-Public Use
  Company Number: US-UNITED THERAPEUTICS-UNT-2022-011321

PATIENT
  Sex: Male

DRUGS (4)
  1. TREPROSTINIL SODIUM [Suspect]
     Active Substance: TREPROSTINIL SODIUM
     Indication: Pulmonary arterial hypertension
     Dosage: UNK
     Dates: start: 20220403
  2. TREPROSTINIL SODIUM [Suspect]
     Active Substance: TREPROSTINIL SODIUM
     Dosage: 54 ?G, QID
  3. TREPROSTINIL SODIUM [Suspect]
     Active Substance: TREPROSTINIL SODIUM
     Dosage: 66 ?G, QID
  4. TREPROSTINIL SODIUM [Suspect]
     Active Substance: TREPROSTINIL SODIUM
     Dosage: 72 ?G, QID

REACTIONS (5)
  - Loss of consciousness [Unknown]
  - Hypotension [Recovering/Resolving]
  - Cough [Unknown]
  - Productive cough [Unknown]
  - Sputum discoloured [Unknown]

NARRATIVE: CASE EVENT DATE: 20220101
